FAERS Safety Report 10853302 (Version 1)
Quarter: 2015Q1

REPORT INFORMATION
  Report Type: Report from Study
  Country: US (occurrence: US)
  Receive Date: 20150223
  Receipt Date: 20150223
  Transmission Date: 20150721
  Serious: Yes (Other)
  Sender: FDA-Public Use
  Company Number: US-BIOGENIDEC-2015BI020181

PATIENT
  Sex: Female

DRUGS (1)
  1. TYSABRI [Suspect]
     Active Substance: NATALIZUMAB
     Indication: MULTIPLE SCLEROSIS
     Route: 042
     Dates: start: 20110217, end: 20140324

REACTIONS (9)
  - Epilepsy [Unknown]
  - Diplopia [Unknown]
  - Cognitive disorder [Unknown]
  - Incontinence [Unknown]
  - Aphasia [Unknown]
  - Muscular weakness [Unknown]
  - Muscle spasticity [Unknown]
  - Depression [Unknown]
  - Dysarthria [Unknown]
